FAERS Safety Report 5871499-9 (Version None)
Quarter: 2008Q3

REPORT INFORMATION
  Report Type: 
  Country: None (occurrence: None)
  Receive Date: 20080905
  Receipt Date: 20080812
  Transmission Date: 20090109
  Serious: No
  Sender: FDA-Public Use
  Company Number: A0712723A

PATIENT
  Age: 53 Year
  Sex: Female

DRUGS (6)
  1. REQUIP [Suspect]
     Indication: RESTLESS LEGS SYNDROME
     Dosage: 1MG PER DAY
     Route: 048
     Dates: start: 20070823
  2. LIPITOR [Concomitant]
  3. FORTEO [Concomitant]
  4. IBUPROFEN [Concomitant]
  5. KLONOPIN [Concomitant]
  6. WELLBUTRIN [Concomitant]
     Route: 048

REACTIONS (2)
  - NAUSEA [None]
  - SENSITIVITY OF TEETH [None]
